FAERS Safety Report 25746379 (Version 1)
Quarter: 2025Q3

REPORT INFORMATION
  Report Type: Report from Study
  Country: CN (occurrence: CN)
  Receive Date: 20250901
  Receipt Date: 20250901
  Transmission Date: 20251021
  Serious: Yes (Other)
  Sender: ALEXION PHARMACEUTICALS
  Company Number: CN-ASTRAZENECA-202508GLO022681CN

PATIENT
  Age: 14 Year
  Sex: Male

DRUGS (3)
  1. SELUMETINIB [Suspect]
     Active Substance: SELUMETINIB
     Dosage: 25 MILLIGRAM, BID
     Route: 065
  2. ALFACALCIDOL [Concomitant]
     Active Substance: ALFACALCIDOL
     Route: 065
  3. CALCIUM CARBONATE\VITAMIN D [Concomitant]
     Active Substance: CALCIUM CARBONATE\VITAMIN D
     Route: 065

REACTIONS (1)
  - Renal injury [Not Recovered/Not Resolved]

NARRATIVE: CASE EVENT DATE: 20250721
